FAERS Safety Report 23707252 (Version 1)
Quarter: 2024Q2

REPORT INFORMATION
  Report Type: Spontaneous
  Country: US (occurrence: US)
  Receive Date: 20240404
  Receipt Date: 20240404
  Transmission Date: 20240716
  Serious: Yes (Hospitalization, Other)
  Sender: FDA-Public Use
  Company Number: None

PATIENT
  Age: 78 Year
  Sex: Female

DRUGS (8)
  1. DOCETAXEL [Suspect]
     Active Substance: DOCETAXEL\DOCETAXEL ANHYDROUS
     Indication: Sarcoma
     Route: 065
  2. GEMCITABINE [Suspect]
     Active Substance: GEMCITABINE
     Indication: Sarcoma
     Route: 065
  3. INSULIN NOS [Concomitant]
     Active Substance: INSULIN NOS
     Indication: Product used for unknown indication
     Route: 065
  4. AMLODIPINE [Concomitant]
     Active Substance: AMLODIPINE BESYLATE
     Indication: Product used for unknown indication
  5. LISINOPRIL [Concomitant]
     Active Substance: LISINOPRIL
  6. ASPIRIN [Concomitant]
     Active Substance: ASPIRIN
     Indication: Product used for unknown indication
     Route: 065
  7. HEPARIN [Concomitant]
     Active Substance: HEPARIN SODIUM
     Indication: Product used for unknown indication
     Route: 058
  8. GEMCITABINE [Concomitant]
     Active Substance: GEMCITABINE
     Indication: Sarcoma
     Dosage: TWO CYCLES

REACTIONS (9)
  - Blindness unilateral [Recovering/Resolving]
  - Retinal detachment [Recovering/Resolving]
  - Intraocular pressure increased [Recovering/Resolving]
  - Choroidal effusion [Recovering/Resolving]
  - Choroidal detachment [Recovering/Resolving]
  - Pericardial effusion [Unknown]
  - Toxicity to various agents [Unknown]
  - Retinal disorder [Recovering/Resolving]
  - Blood creatinine increased [Not Recovered/Not Resolved]
